FAERS Safety Report 23193974 (Version 2)
Quarter: 2025Q1

REPORT INFORMATION
  Report Type: Spontaneous
  Country: US (occurrence: US)
  Receive Date: 20231117
  Receipt Date: 20250123
  Transmission Date: 20250409
  Serious: Yes (Hospitalization, Other)
  Sender: BRISTOL-MYERS SQUIBB COMPANY
  Company Number: US-BRISTOL-MYERS SQUIBB COMPANY-2023-163261

PATIENT
  Age: 76 Year
  Sex: Male

DRUGS (22)
  1. ELIQUIS [Suspect]
     Active Substance: APIXABAN
     Indication: Thrombosis
     Dates: end: 20220915
  2. VRAYLAR [Suspect]
     Active Substance: CARIPRAZINE
     Indication: Depression
     Dates: start: 2018, end: 201912
  3. VRAYLAR [Suspect]
     Active Substance: CARIPRAZINE
     Indication: Anxiety
  4. VRAYLAR [Suspect]
     Active Substance: CARIPRAZINE
     Indication: Psychotic disorder
  5. INGREZZA [Concomitant]
     Active Substance: VALBENAZINE
     Indication: Tardive dyskinesia
     Route: 048
     Dates: start: 20210515, end: 20210726
  6. INGREZZA [Concomitant]
     Active Substance: VALBENAZINE
     Route: 048
     Dates: start: 20210727, end: 20230314
  7. INGREZZA [Concomitant]
     Active Substance: VALBENAZINE
     Dosage: ALTERNATE DAY DOSING (EVERY OTHER DAY, EVERY THIRD DAY, ETC), TWICE PER WEEK
     Route: 048
     Dates: start: 20230426
  8. INGREZZA [Concomitant]
     Active Substance: VALBENAZINE
     Dosage: EVERY 5TH DAY
     Route: 048
  9. ATORVASTATIN [Concomitant]
     Active Substance: ATORVASTATIN
     Indication: Blood cholesterol increased
  10. CYMBALTA [Concomitant]
     Active Substance: DULOXETINE HYDROCHLORIDE
     Indication: Product used for unknown indication
  11. ASPIRIN [Concomitant]
     Active Substance: ASPIRIN
     Indication: Product used for unknown indication
  12. FLUTICASONE [Concomitant]
     Active Substance: FLUTICASONE
     Indication: Rhinorrhoea
  13. METOPROLOL [Concomitant]
     Active Substance: METOPROLOL
     Indication: Cardiac disorder
  14. MONTELUKAST [Concomitant]
     Active Substance: MONTELUKAST
     Indication: Throat clearing
  15. MONTELUKAST [Concomitant]
     Active Substance: MONTELUKAST
     Indication: Wheezing
  16. MONTELUKAST [Concomitant]
     Active Substance: MONTELUKAST
     Indication: Cough
  17. MONTELUKAST [Concomitant]
     Active Substance: MONTELUKAST
     Indication: Dyspnoea
  18. TAMSULOSIN [Concomitant]
     Active Substance: TAMSULOSIN
     Indication: Prostatic disorder
  19. TYLENOL [Concomitant]
     Active Substance: ACETAMINOPHEN
     Indication: Pain
  20. GEMTESA [Concomitant]
     Active Substance: VIBEGRON
     Indication: Prostatic disorder
  21. FINASTERIDE [Concomitant]
     Active Substance: FINASTERIDE
     Indication: Prostatic disorder
  22. HYDROCODONE [Concomitant]
     Active Substance: HYDROCODONE
     Indication: Pain

REACTIONS (5)
  - Cerebral haemorrhage [Recovered/Resolved with Sequelae]
  - Mitral valve disease [Unknown]
  - Cardiac disorder [Unknown]
  - Tardive dyskinesia [Unknown]
  - Weight bearing difficulty [Unknown]

NARRATIVE: CASE EVENT DATE: 20220915
